FAERS Safety Report 6894377-5 (Version None)
Quarter: 2010Q3

REPORT INFORMATION
  Report Type: 
  Country: None (occurrence: None)
  Receive Date: 20100727
  Receipt Date: 20100708
  Transmission Date: 20110219
  Serious: Yes (Other)
  Sender: FDA-Public Use
  Company Number: 2010070048

PATIENT
  Age: 65 Year
  Sex: Male

DRUGS (4)
  1. TORSEMIDE [Suspect]
     Dosage: 4 MG (4 MG,1 IN 1 D),ORAL
     Route: 048
     Dates: start: 20100405, end: 20100622
  2. FLUITRAN (TRICHLORMETHIAZIDE) [Concomitant]
  3. MYCODYNE (CARBOCYSTEINE) [Concomitant]
  4. HOKUNALIN (TULOBUTEROL) [Concomitant]

REACTIONS (5)
  - ASCITES [None]
  - COMMUNICATION DISORDER [None]
  - HEPATIC ENCEPHALOPATHY [None]
  - HEPATIC FUNCTION ABNORMAL [None]
  - NEPHROTIC SYNDROME [None]
